FAERS Safety Report 6159177-2 (Version None)
Quarter: 2009Q2

REPORT INFORMATION
  Report Type: 
  Country: None (occurrence: None)
  Receive Date: 20090417
  Receipt Date: 20090409
  Transmission Date: 20091009
  Serious: Yes (Other)
  Sender: FDA-Public Use
  Company Number: US-CELGENEUS-163-21880-09041231

PATIENT
  Sex: Male

DRUGS (4)
  1. REVLIMID [Suspect]
     Indication: MULTIPLE MYELOMA
     Route: 048
     Dates: start: 20090226, end: 20090302
  2. REVLIMID [Suspect]
     Route: 048
     Dates: start: 20090305
  3. PREDNISONE [Concomitant]
     Indication: DRUG USE FOR UNKNOWN INDICATION
     Route: 065
     Dates: end: 20090401
  4. PREDNISONE [Concomitant]
     Route: 065
     Dates: start: 20090401

REACTIONS (1)
  - HALLUCINATION [None]
